FAERS Safety Report 9540021 (Version 1)
Quarter: 2013Q2

REPORT INFORMATION
  Report Type: Spontaneous
  Country: US (occurrence: None)
  Receive Date: 20130524
  Receipt Date: 20130524
  Transmission Date: 20140414
  Serious: Yes (Other)
  Sender: FDA-Public Use
  Company Number: 1000029653

PATIENT
  Sex: Female

DRUGS (1)
  1. CERVIDIL (DINOPROSTONE) (10 MILLIGRAM) [Suspect]
     Dosage: 10 MG (10 MG), VAGINAL
     Route: 067

REACTIONS (1)
  - Uterine rupture [None]
